FAERS Safety Report 8777130 (Version 2)
Quarter: 2012Q4

REPORT INFORMATION
  Report Type: 
  Country: DE (occurrence: DE)
  Receive Date: 20120911
  Receipt Date: 20121113
  Transmission Date: 20130627
  Serious: Yes (Hospitalization)
  Sender: FDA-Public Use
  Company Number: DE-US-EMD SERONO, INC.-7159660

PATIENT
  Sex: Female

DRUGS (3)
  1. REBIF [Suspect]
     Indication: MULTIPLE SCLEROSIS
     Route: 058
     Dates: start: 20120307, end: 20120912
  2. PARACETAMOL [Concomitant]
     Indication: PROPHYLAXIS
     Route: 048
     Dates: start: 20120307
  3. IBUPROFEN [Concomitant]
     Indication: PROPHYLAXIS
     Route: 048

REACTIONS (4)
  - Multiple sclerosis relapse [Recovered/Resolved]
  - Gamma-glutamyltransferase increased [Recovered/Resolved]
  - Aspartate aminotransferase increased [Recovered/Resolved]
  - Alanine aminotransferase increased [Recovered/Resolved]
